FAERS Safety Report 12585319 (Version 2)
Quarter: 2016Q4

REPORT INFORMATION
  Report Type: Report from Study
  Country: US (occurrence: US)
  Receive Date: 20160724
  Receipt Date: 20161101
  Transmission Date: 20170207
  Serious: No
  Sender: FDA-Public Use
  Company Number: PHEH2016US018107

PATIENT
  Age: 58 Year
  Sex: Female

DRUGS (1)
  1. COSENTYX [Suspect]
     Active Substance: SECUKINUMAB
     Indication: PRODUCT USED FOR UNKNOWN INDICATION
     Dosage: 300 MG, QW (ONCE A WEEK)
     Route: 065
     Dates: start: 20160712

REACTIONS (3)
  - Drug administration error [Unknown]
  - Incorrect dose administered [Unknown]
  - Device malfunction [Unknown]

NARRATIVE: CASE EVENT DATE: 20160712
